FAERS Safety Report 9100965 (Version 2)
Quarter: 2013Q1

REPORT INFORMATION
  Report Type: Spontaneous
  Country: ES (occurrence: ES)
  Receive Date: 20130215
  Receipt Date: 20130220
  Transmission Date: 20140127
  Serious: Yes (Other)
  Sender: FDA-Public Use
  Company Number: ES-ROCHE-1191539

PATIENT
  Sex: Female

DRUGS (9)
  1. XOLAIR [Suspect]
     Indication: ASTHMA
     Route: 065
     Dates: start: 20090824
  2. SERETIDE [Concomitant]
  3. MONTELUKAST [Concomitant]
  4. ANASTROZOL [Concomitant]
  5. IRBESARTAN [Concomitant]
  6. RISEDRONATE [Concomitant]
  7. CICLOBENZAPRINA [Concomitant]
  8. TORASEMIDE [Concomitant]
  9. PREDNISONE [Concomitant]

REACTIONS (1)
  - Invasive ductal breast carcinoma [Unknown]
